FAERS Safety Report 9543053 (Version 2)
Quarter: 2015Q2

REPORT INFORMATION
  Report Type: Spontaneous
  Country: GB (occurrence: GB)
  Receive Date: 20130923
  Receipt Date: 20150512
  Transmission Date: 20150821
  Serious: Yes (Hospitalization, Other)
  Sender: FDA-Public Use
  Company Number: PHHY2013GB102853

PATIENT
  Age: 42 Year
  Sex: Male

DRUGS (1)
  1. AMITRIPTYLINE [Suspect]
     Active Substance: AMITRIPTYLINE
     Indication: PRODUCT USED FOR UNKNOWN INDICATION
     Route: 065

REACTIONS (5)
  - Muscular weakness [Recovered/Resolved]
  - Ischaemic stroke [Recovered/Resolved]
  - Toxicity to various agents [Unknown]
  - Loss of consciousness [Recovered/Resolved]
  - Cerebral artery thrombosis [Recovered/Resolved]
